FAERS Safety Report 24656706 (Version 1)
Quarter: 2024Q4

REPORT INFORMATION
  Report Type: Spontaneous
  Country: US (occurrence: US)
  Receive Date: 20241124
  Receipt Date: 20241124
  Transmission Date: 20250115
  Serious: No
  Sender: ROCHE
  Company Number: US-ROCHE-10000136042

PATIENT
  Age: 33 Year
  Sex: Female
  Weight: 104.32 kg

DRUGS (2)
  1. OCREVUS [Suspect]
     Active Substance: OCRELIZUMAB
     Indication: Relapsing multiple sclerosis
     Route: 065
  2. COPAXONE [Concomitant]
     Active Substance: GLATIRAMER ACETATE

REACTIONS (10)
  - Diarrhoea [Unknown]
  - Headache [Unknown]
  - Oropharyngeal pain [Unknown]
  - Ear discomfort [Unknown]
  - Dry mouth [Unknown]
  - Odynophagia [Unknown]
  - Peripheral swelling [Unknown]
  - Temperature intolerance [Unknown]
  - Arthralgia [Unknown]
  - Pain in extremity [Unknown]

NARRATIVE: CASE EVENT DATE: 20241118
